FAERS Safety Report 4703049-4 (Version None)
Quarter: 2005Q2

REPORT INFORMATION
  Report Type: 
  Country: None (occurrence: None)
  Receive Date: 20050628
  Receipt Date: 20050628
  Transmission Date: 20051028
  Serious: Yes (Hospitalization)
  Sender: FDA-Public Use
  Company Number: None

PATIENT
  Age: 73 Year
  Sex: Female
  Weight: 66 kg

DRUGS (5)
  1. INDOMETHACIN [Suspect]
     Indication: ARTHRITIS
     Dosage: 25 MG PO TID -} QID
     Route: 048
  2. INDOMETHACIN [Suspect]
     Indication: GOUT
     Dosage: 25 MG PO TID -} QID
     Route: 048
  3. ZESTORETIC [Concomitant]
  4. LIPITOR [Concomitant]
  5. TYLENOL W/ CODEINE NO. 3 [Concomitant]

REACTIONS (8)
  - ASTHENIA [None]
  - DIZZINESS [None]
  - DYSPNOEA [None]
  - FAECAL OCCULT BLOOD POSITIVE [None]
  - GASTRIC ULCER [None]
  - HAEMOGLOBIN DECREASED [None]
  - MELAENA [None]
  - PALPITATIONS [None]
